FAERS Safety Report 8098229-7 (Version None)
Quarter: 2012Q1

REPORT INFORMATION
  Report Type: 
  Country: None (occurrence: None)
  Receive Date: 20120128
  Receipt Date: 20110807
  Transmission Date: 20120608
  Serious: No
  Sender: FDA-Public Use
  Company Number: US-ABBOTT-11P-163-0844593-00

PATIENT
  Age: 56 Year
  Sex: Female

DRUGS (7)
  1. ZYRTEC [Concomitant]
     Indication: HYPERSENSITIVITY
     Dosage: 10 MG DAILY AS NEEDED
  2. LOTREL [Concomitant]
     Indication: HYPERTENSION
     Dosage: 10/40
  3. METHOTREXATE [Concomitant]
     Indication: RHEUMATOID ARTHRITIS
     Dosage: 5 TABLETS WEEKLY
  4. FOLIC ACID [Concomitant]
     Indication: VITAMIN SUPPLEMENTATION
     Dosage: 2 MG DAILY
  5. HUMIRA [Suspect]
     Indication: RHEUMATOID ARTHRITIS
     Dates: start: 20110301
  6. PREDNISONE [Concomitant]
     Indication: RHEUMATOID ARTHRITIS
     Dosage: 1 MG DAILY
  7. ATENOLOL [Concomitant]
     Indication: HYPERTENSION
     Dosage: 50 MG DAILY

REACTIONS (2)
  - SKIN MASS [None]
  - ORAL DISORDER [None]
